FAERS Safety Report 20420433 (Version 2)
Quarter: 2022Q1

REPORT INFORMATION
  Report Type: Other
  Country: US (occurrence: None)
  Receive Date: 20220203
  Receipt Date: 20220314
  Transmission Date: 20220424
  Serious: Yes (Other)
  Sender: FDA-Public Use
  Company Number: US-ROCHE-3012246

PATIENT
  Sex: Female

DRUGS (5)
  1. XELODA [Suspect]
     Active Substance: CAPECITABINE
     Indication: Neuroendocrine tumour
     Dosage: TAKE 2 TABLET(S) BY MOUTH TWICE A DAY ON DAYS 1-14 AS DIRECTED
     Route: 048
  2. DAPSONE [Concomitant]
     Active Substance: DAPSONE
  3. TRAMADOL HYDROCHLORIDE [Concomitant]
     Active Substance: TRAMADOL HYDROCHLORIDE
  4. CELEBREC [Concomitant]
  5. TIMOPTIC [Concomitant]
     Active Substance: TIMOLOL MALEATE

REACTIONS (2)
  - Recurrent cancer [Unknown]
  - Off label use [Unknown]
